FAERS Safety Report 9265077 (Version 3)
Quarter: 2013Q4

REPORT INFORMATION
  Report Type: Spontaneous
  Country: JP (occurrence: JP)
  Receive Date: 20130501
  Receipt Date: 20131029
  Transmission Date: 20140711
  Serious: Yes (Hospitalization)
  Sender: FDA-Public Use
  Company Number: JP-ASTELLAS-2013JP005496

PATIENT
  Sex: Female
  Weight: 37.4 kg

DRUGS (13)
  1. PROGRAF [Suspect]
     Indication: LIVER TRANSPLANT
     Dosage: 3 MG, BID
     Route: 048
     Dates: start: 1987
  2. MEDROL                             /00049601/ [Concomitant]
     Dosage: 2 MG, BID
     Route: 048
     Dates: start: 2009
  3. MAINTATE [Concomitant]
     Dosage: 2.5 MG, BID
     Route: 048
  4. NORVASC [Concomitant]
     Dosage: 5 MG, UID/QD
     Route: 048
     Dates: end: 201304
  5. ADALAT CR [Concomitant]
     Dosage: 20 MG, UID/QD
     Route: 048
     Dates: start: 2009
  6. ALFAROL [Concomitant]
     Dosage: 1 UG, UID/QD
     Route: 048
     Dates: start: 2009
  7. URSO                               /00465701/ [Concomitant]
     Dosage: 200 MG, TID
     Route: 048
     Dates: start: 2009
  8. PARIET [Concomitant]
     Dosage: 10 MG, BID
     Route: 048
     Dates: start: 2009
  9. GASMOTIN [Concomitant]
     Dosage: 5 MG, TID
     Route: 048
     Dates: start: 2009
  10. SALIGREN [Concomitant]
     Dosage: 30 MG, TID
     Route: 048
     Dates: start: 2009
  11. LENDORMIN [Concomitant]
     Dosage: 0.25 MG, UID/QD
     Route: 048
     Dates: start: 2009
  12. MEDICON                            /00048102/ [Concomitant]
     Dosage: 15 MG, TID
     Route: 048
  13. METHYCOBAL [Concomitant]
     Dosage: 500 UG, TID
     Route: 048

REACTIONS (1)
  - Nephrotic syndrome [Recovering/Resolving]
